FAERS Safety Report 21577059 (Version 1)
Quarter: 2022Q4

REPORT INFORMATION
  Report Type: Report from Study
  Country: AT (occurrence: AT)
  Receive Date: 20221110
  Receipt Date: 20221110
  Transmission Date: 20230113
  Serious: Yes (Other)
  Sender: FDA-Public Use
  Company Number: None

PATIENT
  Age: 49 Year
  Sex: Female
  Weight: 55 kg

DRUGS (14)
  1. PACLITAXEL [Suspect]
     Active Substance: PACLITAXEL
     Indication: Breast cancer
     Dosage: 199 MG (WEEKLY MOST RECENT DOSE WAS RECEIVED ON 15/MAY/2019)
     Dates: start: 20181205, end: 20190515
  2. EXEMESTANE [Suspect]
     Active Substance: EXEMESTANE
     Indication: Breast cancer
     Dosage: 25 MG (FREQUENCY: OD)
     Dates: start: 20181108
  3. DENOSUMAB [Suspect]
     Active Substance: DENOSUMAB
     Indication: HER2 positive breast cancer
     Dosage: 120 MG EVERY 4 WEEKS
     Dates: start: 20190104
  4. PERTUZUMAB [Suspect]
     Active Substance: PERTUZUMAB
     Indication: Breast cancer
     Dosage: 420 MG EVERY 4 WEEKS (MOST RECENT DOSE PRIOR TO THE EVENT: 13/NOV/2018)
     Dates: start: 20190918
  5. TRASTUZUMAB [Suspect]
     Active Substance: TRASTUZUMAB
     Indication: Breast cancer
     Dosage: 330 MG EVERY 3 WEEKS (MOST RECENT DOSE PRIOR TO THE EVENT: 13/NOV/2018)
     Dates: start: 20181113, end: 20190918
  6. PERTUZUMAB [Suspect]
     Active Substance: PERTUZUMAB
     Indication: HER2 positive breast cancer
     Dosage: 420 MG EVERY 3 WEEKS (MOST RECENT DOSE PRIOR TO THE EVENT: 13/NOV/2018)
     Dates: start: 20181113, end: 20190918
  7. PACLITAXEL [Suspect]
     Active Substance: PACLITAXEL
     Indication: HER2 positive breast cancer
     Dosage: 199 MG WEEKLY
     Dates: start: 20181205, end: 20190515
  8. PANTOPRAZOLE [Concomitant]
     Active Substance: PANTOPRAZOLE
     Dosage: ONGOING CHECKED
     Dates: start: 20181108
  9. OLEOVIT [Concomitant]
     Dosage: ONGOING CHECKED
     Dates: start: 20181108
  10. PREGABALIN [Concomitant]
     Active Substance: PREGABALIN
     Dosage: ONGOING CHECKED
  11. DIAZEPAM [Concomitant]
     Active Substance: DIAZEPAM
     Dosage: ONGOING CHECKED
     Dates: start: 20181108
  12. PACLITAXEL [Suspect]
     Active Substance: PACLITAXEL
     Indication: Breast cancer
     Dosage: 199 MG (WEEKLY; MOST RECENT DOSE WAS RECEIVED ON 15/MAY/2019)
     Dates: start: 20181215
  13. PERTUZUMAB [Suspect]
     Active Substance: PERTUZUMAB
     Indication: Breast cancer
     Dosage: 420 MG EVERY 3 WEEKS (MOST RECENT DOSE PRIOR TO THE EVENT: 13/NOV/2018)
     Dates: start: 20181113, end: 20190918
  14. TRASTUZUMAB [Suspect]
     Active Substance: TRASTUZUMAB
     Indication: Breast cancer
     Dosage: 330 MG EVERY 4 WEEKS (MOST RECENT DOSE PRIOR TO THE EVENT: 13/NOV/2018)
     Dates: start: 20190918

REACTIONS (4)
  - Stomatitis [Recovered/Resolved]
  - Off label use [Unknown]
  - Polyneuropathy [Recovered/Resolved]
  - Arthralgia [Recovered/Resolved]

NARRATIVE: CASE EVENT DATE: 20181207
